FAERS Safety Report 5284483-3 (Version None)
Quarter: 2007Q1

REPORT INFORMATION
  Report Type: 
  Country: None (occurrence: None)
  Receive Date: 20061228
  Receipt Date: 20060518
  Transmission Date: 20070707
  Serious: Yes (Hospitalization)
  Sender: FDA-Public Use
  Company Number: 145829USA

PATIENT
  Age: 41 Year
  Sex: Male

DRUGS (5)
  1. CLOZAPINE [Suspect]
     Indication: OBSESSIVE-COMPULSIVE DISORDER
     Dosage: 300 MG
     Dates: end: 20060511
  2. CLOZAPINE [Suspect]
     Indication: SCHIZOAFFECTIVE DISORDER
     Dosage: 300 MG
     Dates: end: 20060511
  3. CLOMIPRAMINE HYDROCHLORIDE [Concomitant]
  4. FUROSEMIDE [Concomitant]
  5. METOPROLOL SUCCINATE [Concomitant]

REACTIONS (5)
  - ABDOMINAL DISTENSION [None]
  - ILEITIS [None]
  - INTESTINAL OBSTRUCTION [None]
  - NAUSEA [None]
  - VOMITING [None]
